FAERS Safety Report 7703079-4 (Version None)
Quarter: 2011Q3

REPORT INFORMATION
  Report Type: 
  Country: None (occurrence: None)
  Receive Date: 20110823
  Receipt Date: 20110816
  Transmission Date: 20111222
  Serious: No
  Sender: FDA-Public Use
  Company Number: DE-UCBSA-038832

PATIENT
  Sex: Male

DRUGS (1)
  1. VIMPAT [Suspect]

REACTIONS (1)
  - LOSS OF CONSCIOUSNESS [None]
